FAERS Safety Report 11625106 (Version 1)
Quarter: 2015Q4

REPORT INFORMATION
  Report Type: Spontaneous
  Country: US (occurrence: US)
  Receive Date: 20151013
  Receipt Date: 20151013
  Transmission Date: 20160304
  Serious: No
  Sender: FDA-Public Use
  Company Number: US-NOVOPROD-463512

PATIENT
  Age: 27 Year
  Sex: Female

DRUGS (1)
  1. SAXENDA [Suspect]
     Active Substance: LIRAGLUTIDE
     Indication: WEIGHT DECREASED
     Route: 058
     Dates: start: 201508

REACTIONS (7)
  - Abdominal distension [Recovered/Resolved]
  - Injection site dryness [Recovered/Resolved]
  - Injection site rash [Recovered/Resolved]
  - Pruritus [Unknown]
  - Drug ineffective [Unknown]
  - Injection site swelling [Recovered/Resolved]
  - Weight increased [Unknown]
